FAERS Safety Report 5730941-4 (Version None)
Quarter: 2008Q2

REPORT INFORMATION
  Report Type: 
  Country: None (occurrence: None)
  Receive Date: 20080507
  Receipt Date: 20080429
  Transmission Date: 20081010
  Serious: Yes (Other)
  Sender: FDA-Public Use
  Company Number: CA-AMGEN-KDL273591

PATIENT
  Sex: Female
  Weight: 74.9 kg

DRUGS (3)
  1. ENBREL [Suspect]
     Indication: RHEUMATOID ARTHRITIS
     Route: 058
     Dates: start: 20080215, end: 20080402
  2. METHOTREXATE [Concomitant]
     Dates: start: 20070301
  3. HYDROXYCHLOROQUINE SULFATE [Concomitant]
     Dates: start: 20070301

REACTIONS (1)
  - LEUKOCYTOCLASTIC VASCULITIS [None]
